FAERS Safety Report 8000784-X (Version None)
Quarter: 2011Q4

REPORT INFORMATION
  Report Type: 
  Country: None (occurrence: None)
  Receive Date: 20111123
  Receipt Date: 20110822
  Transmission Date: 20120403
  Serious: Yes (Other)
  Sender: FDA-Public Use
  Company Number: 332845

PATIENT
  Age: 40 Year
  Sex: Female
  Weight: 45.4 kg

DRUGS (8)
  1. VICTOZA [Suspect]
     Indication: TYPE 2 DIABETES MELLITUS
     Dosage: 1.8 MG, QD, SUBCUTANEOUS
     Route: 058
     Dates: start: 20100727, end: 20110713
  2. HYDROCODONE BITARTRATE AND ACETAMINOPHEN (HYDROCODONE BITARTRATE, PARA [Concomitant]
  3. ZOLPIDEM TARTRATE [Concomitant]
  4. LEVOTHYROXINE SODIUM [Concomitant]
  5. LORAZEPAM [Concomitant]
  6. METFORMIN HCL [Concomitant]
  7. PREDNISONE TAB [Concomitant]
  8. ONGLYZA [Concomitant]

REACTIONS (1)
  - PANCREATITIS [None]
